FAERS Safety Report 9331667 (Version 4)
Quarter: 2014Q3

REPORT INFORMATION
  Report Type: Spontaneous
  Country: US (occurrence: US)
  Receive Date: 20130605
  Receipt Date: 20140724
  Transmission Date: 20150326
  Serious: Yes (Other)
  Sender: FDA-Public Use
  Company Number: US-PFIZER INC-2013167067

PATIENT
  Age: 72 Year
  Sex: Female

DRUGS (1)
  1. LYRICA [Suspect]
     Active Substance: PREGABALIN
     Dosage: UNK
     Dates: start: 2007, end: 201207

REACTIONS (21)
  - Head injury [Unknown]
  - Pain [Unknown]
  - Fear [Unknown]
  - Eye disorder [Unknown]
  - Fall [Unknown]
  - Injury [Unknown]
  - Dysstasia [Unknown]
  - Skin discolouration [Unknown]
  - Heart rate decreased [Unknown]
  - Weight decreased [Unknown]
  - Limb injury [Unknown]
  - Malaise [Unknown]
  - Grip strength decreased [Unknown]
  - Blindness unilateral [Unknown]
  - Activities of daily living impaired [Unknown]
  - Feeling abnormal [Unknown]
  - Vomiting [Unknown]
  - Vision blurred [Unknown]
  - Red blood cell count decreased [Unknown]
  - Laceration [Unknown]
  - Dysgraphia [Unknown]

NARRATIVE: CASE EVENT DATE: 20120707
